FAERS Safety Report 7327187-5 (Version None)
Quarter: 2011Q1

REPORT INFORMATION
  Report Type: 
  Country: None (occurrence: None)
  Receive Date: 20110218
  Receipt Date: 20110207
  Transmission Date: 20110831
  Serious: Yes (Death, Hospitalization)
  Sender: FDA-Public Use
  Company Number: 2011000656

PATIENT
  Age: 77 Year
  Sex: Male

DRUGS (1)
  1. TARCEVA [Suspect]
     Indication: NON-SMALL CELL LUNG CANCER
     Dosage: (150 MG, QD), ORAL
     Route: 048

REACTIONS (5)
  - RESPIRATORY FAILURE [None]
  - RADIATION PNEUMONITIS [None]
  - LUNG CONSOLIDATION [None]
  - CARCINOEMBRYONIC ANTIGEN INCREASED [None]
  - PULMONARY FIBROSIS [None]
